FAERS Safety Report 5195075-9 (Version None)
Quarter: 2006Q4

REPORT INFORMATION
  Report Type: 
  Country: None (occurrence: None)
  Receive Date: 20061229
  Receipt Date: 20040927
  Transmission Date: 20070319
  Serious: Yes (Other)
  Sender: FDA-Public Use
  Company Number: US-NOVOPROD-239569

PATIENT
  Sex: Female
  Weight: 56.236 kg

DRUGS (8)
  1. ACTIVELLA [Suspect]
     Indication: HORMONE REPLACEMENT THERAPY
     Route: 048
     Dates: start: 19990101, end: 20020101
  2. PREMPRO [Suspect]
     Indication: HORMONE REPLACEMENT THERAPY
     Dates: start: 19970101, end: 19980101
  3. PREMPHASE 14/14 [Suspect]
     Indication: HORMONE REPLACEMENT THERAPY
     Dosage: 0.625 MG/ 5 MG
     Dates: start: 19990101, end: 20020101
  4. PROVERA [Suspect]
     Indication: VAGINAL HAEMORRHAGE
     Dosage: 10 MG X 10 DAYS Q MONTH
     Route: 048
     Dates: start: 19950101, end: 19990101
  5. ASPIRIN [Concomitant]
     Indication: ILL-DEFINED DISORDER
     Dosage: 81 MG, UNK
     Route: 048
     Dates: start: 20010101
  6. COUMADIN [Concomitant]
     Indication: ILL-DEFINED DISORDER
     Dosage: 5 MG, UNK
     Route: 048
     Dates: start: 20010101
  7. PROTONIX                           /01263201/ [Concomitant]
     Indication: ILL-DEFINED DISORDER
     Dosage: 40 MG, UNK
     Dates: start: 20010101, end: 20020101
  8. LORTAB [Concomitant]
     Indication: ILL-DEFINED DISORDER
     Dosage: UNK, UNK
     Dates: start: 20010101

REACTIONS (5)
  - CEREBROVASCULAR ACCIDENT [None]
  - INJURY [None]
  - THROMBOSIS [None]
  - VENOUS OCCLUSION [None]
  - VENOUS THROMBOSIS [None]
